FAERS Safety Report 25668886 (Version 1)
Quarter: 2025Q3

REPORT INFORMATION
  Report Type: Report from Study
  Country: US (occurrence: US)
  Receive Date: 20250812
  Receipt Date: 20250812
  Transmission Date: 20251020
  Serious: Yes (Other)
  Sender: ABBVIE
  Company Number: US-ABBVIE-6292476

PATIENT
  Age: 56 Year
  Sex: Female
  Weight: 42 kg

DRUGS (1)
  1. VYALEV [Suspect]
     Active Substance: FOSCARBIDOPA\FOSLEVODOPA
     Indication: Product used for unknown indication
     Route: 058
     Dates: start: 20250418, end: 20250530

REACTIONS (8)
  - Appendicectomy [Unknown]
  - Infusion site nodule [Unknown]
  - Infusion site pruritus [Unknown]
  - Infusion site bruising [Unknown]
  - Infusion site infection [Unknown]
  - Infusion site irritation [Not Recovered/Not Resolved]
  - Infusion site pain [Unknown]
  - Malnutrition [Unknown]

NARRATIVE: CASE EVENT DATE: 20250101
